FAERS Safety Report 24630634 (Version 1)
Quarter: 2024Q4

REPORT INFORMATION
  Report Type: Spontaneous
  Country: US (occurrence: US)
  Receive Date: 20241118
  Receipt Date: 20241118
  Transmission Date: 20250115
  Serious: Yes (Hospitalization)
  Sender: BRISTOL-MYERS SQUIBB COMPANY
  Company Number: US-BRISTOL-MYERS SQUIBB COMPANY-2024-179660

PATIENT
  Age: 43 Year
  Sex: Male

DRUGS (1)
  1. REVLIMID [Suspect]
     Active Substance: LENALIDOMIDE
     Indication: Systemic lupus erythematosus
     Dosage: FREQUENCY: EVERY OTHER DAY FOR 28 DAYS
     Route: 048
     Dates: start: 20231102

REACTIONS (2)
  - Hospitalisation [Unknown]
  - Off label use [Unknown]
